FAERS Safety Report 22334511 (Version 1)
Quarter: 2023Q2

REPORT INFORMATION
  Report Type: Spontaneous
  Country: US (occurrence: None)
  Receive Date: 20230517
  Receipt Date: 20230517
  Transmission Date: 20230722
  Serious: No
  Sender: FDA-Public Use
  Company Number: US-ROCHE-3104839

PATIENT
  Sex: Female

DRUGS (24)
  1. ACTEMRA [Suspect]
     Active Substance: TOCILIZUMAB
     Indication: Rheumatoid arthritis
     Dosage: STRENGTH: 162 MG/ 0.9 ML
     Route: 058
  2. ACTEMRA [Suspect]
     Active Substance: TOCILIZUMAB
  3. ACTEMRA [Suspect]
     Active Substance: TOCILIZUMAB
  4. ACTEMRA [Suspect]
     Active Substance: TOCILIZUMAB
     Route: 058
  5. ACTEMRA [Suspect]
     Active Substance: TOCILIZUMAB
  6. ACTEMRA [Suspect]
     Active Substance: TOCILIZUMAB
  7. HUMIRA [Concomitant]
     Active Substance: ADALIMUMAB
     Dosage: STRENGTH 40 MG/0.8
  8. METHOTREXATE [Concomitant]
     Active Substance: METHOTREXATE
  9. TRAMADOL HCL [Concomitant]
     Active Substance: TRAMADOL HYDROCHLORIDE
  10. LISINOPRIL [Concomitant]
     Active Substance: LISINOPRIL
  11. METOPROLOL [Concomitant]
     Active Substance: METOPROLOL
  12. METOPROLOL [Concomitant]
     Active Substance: METOPROLOL
  13. MELOXICAM [Concomitant]
     Active Substance: MELOXICAM
  14. OMEPRAZOLE [Concomitant]
     Active Substance: OMEPRAZOLE
  15. MONTELUKAST [Concomitant]
     Active Substance: MONTELUKAST SODIUM
  16. AMITIZA [Concomitant]
     Active Substance: LUBIPROSTONE
     Dosage: DOSE: 24 MCG
  17. ATORVASTATIN [Concomitant]
     Active Substance: ATORVASTATIN
  18. LORAZEPAM [Concomitant]
     Active Substance: LORAZEPAM
  19. PREDNISONE [Concomitant]
     Active Substance: PREDNISONE
  20. TRIMETHOBENZAMIDE [Concomitant]
     Active Substance: TRIMETHOBENZAMIDE
  21. BUSPIRONE [Concomitant]
     Active Substance: BUSPIRONE HYDROCHLORIDE
  22. MIRTAZAPINE [Concomitant]
     Active Substance: MIRTAZAPINE
  23. ZITHROMAX [Concomitant]
     Active Substance: AZITHROMYCIN DIHYDRATE
  24. RISPERIDONE [Concomitant]
     Active Substance: RISPERIDONE

REACTIONS (1)
  - Diarrhoea [Not Recovered/Not Resolved]
